FAERS Safety Report 4368050-1 (Version None)
Quarter: 2004Q2

REPORT INFORMATION
  Report Type: 
  Country: None (occurrence: None)
  Receive Date: 20040527
  Receipt Date: 20040331
  Transmission Date: 20050107
  Serious: No
  Sender: FDA-Public Use
  Company Number: 206326

PATIENT
  Age: 46 Year
  Sex: Female

DRUGS (1)
  1. RAPTIVA [Suspect]
     Indication: PSORIASIS
     Dosage: 0.7 ML, SUBCUTANEOUS
     Route: 058
     Dates: start: 20040101

REACTIONS (3)
  - LACRIMATION INCREASED [None]
  - VISION BLURRED [None]
  - VISUAL DISTURBANCE [None]
